FAERS Safety Report 8580028-0 (Version None)
Quarter: 2012Q3

REPORT INFORMATION
  Report Type: 
  Country: None (occurrence: None)
  Receive Date: 20120808
  Receipt Date: 20120803
  Transmission Date: 20120928
  Serious: Yes (Other)
  Sender: FDA-Public Use
  Company Number: US-FRI-1000037624

PATIENT
  Age: 73 Year
  Sex: Male

DRUGS (8)
  1. COMBIVENT [Concomitant]
  2. TEFLARO [Suspect]
     Indication: OPEN WOUND
     Dosage: 600 MG EVERY 12 HOURS
     Route: 042
     Dates: start: 20120731, end: 20120731
  3. DOCUSATE [Concomitant]
     Dosage: 100 MG
  4. FUROSEMIDE [Concomitant]
     Dosage: 40 MG
  5. SOLU-MEDROL [Concomitant]
     Dosage: 60 MG EVERY 12 HOURS
  6. MAGNESIUM OXIDE [Concomitant]
     Dosage: 400 MG
  7. ASCORBIC ACID [Concomitant]
  8. COREG [Concomitant]

REACTIONS (5)
  - DYSPNOEA [None]
  - OFF LABEL USE [None]
  - STRIDOR [None]
  - APNOEA [None]
  - ADVERSE DRUG REACTION [None]
